FAERS Safety Report 5026045-9 (Version None)
Quarter: 2006Q2

REPORT INFORMATION
  Report Type: 
  Country: None (occurrence: None)
  Receive Date: 20060608
  Receipt Date: 20060523
  Transmission Date: 20061013
  Serious: Yes (Hospitalization)
  Sender: FDA-Public Use
  Company Number: DSA_28208_2006

PATIENT
  Age: 80 Year
  Sex: Male

DRUGS (12)
  1. ENALAPRIL MALEATE [Suspect]
     Indication: CARDIAC FAILURE
     Dosage: DF Q DAY PO
     Route: 048
     Dates: start: 20050706, end: 20050713
  2. SPIRONOLACTONE [Suspect]
     Indication: CARDIAC FAILURE
     Dosage: DF UNK PO
     Route: 048
     Dates: start: 20050709, end: 20050713
  3. NOVALGIN [Suspect]
     Indication: PAIN
     Dosage: 1 DF ONCE
     Dates: end: 20050714
  4. NOVALGIN [Suspect]
     Indication: PAIN
     Dosage: 1 DF ONCE
  5. LOCOL [Suspect]
     Dosage: 40 MG QD PO
     Route: 048
     Dates: end: 20050112
  6. FUROSEMIDE [Concomitant]
  7. IBUPROFEN [Concomitant]
  8. NOCTAMID [Concomitant]
  9. PANTOZOL [Concomitant]
  10. MARCUMAR [Concomitant]
  11. AQUAPHOR [Concomitant]
  12. PIPERACILLIN SODIUM + TAZOBACTAM SODIUM [Concomitant]

REACTIONS (9)
  - DECREASED APPETITE [None]
  - DRUG TOXICITY [None]
  - KLEBSIELLA INFECTION [None]
  - ORAL MUCOSAL DISORDER [None]
  - PANCYTOPENIA [None]
  - PHARYNGOLARYNGEAL PAIN [None]
  - STOMATITIS [None]
  - URINARY TRACT INFECTION BACTERIAL [None]
  - WEIGHT DECREASED [None]
